FAERS Safety Report 6749665-X (Version None)
Quarter: 2010Q2

REPORT INFORMATION
  Report Type: 
  Country: None (occurrence: None)
  Receive Date: 20100601
  Receipt Date: 20100527
  Transmission Date: 20101027
  Serious: Yes (Death, Hospitalization, Congenital Anomaly)
  Sender: FDA-Public Use
  Company Number: B0657447A

PATIENT
  Sex: Female

DRUGS (2)
  1. LAMICTAL [Suspect]
     Dosage: 200MG TWICE PER DAY
  2. TEGRETOL [Suspect]
     Dosage: 400MG THREE TIMES PER DAY

REACTIONS (6)
  - CONGENITAL AORTIC STENOSIS [None]
  - CONGENITAL HEART VALVE DISORDER [None]
  - DILATATION VENTRICULAR [None]
  - DRUG EXPOSURE DURING PREGNANCY [None]
  - HEART DISEASE CONGENITAL [None]
  - VENTRICULAR HYPOKINESIA [None]
